FAERS Safety Report 18808667 (Version 1)
Quarter: 2021Q1

REPORT INFORMATION
  Report Type: Spontaneous
  Country: US (occurrence: US)
  Receive Date: 20210129
  Receipt Date: 20210129
  Transmission Date: 20210419
  Serious: Yes (Other)
  Sender: FDA-Public Use
  Company Number: None

PATIENT
  Age: 36 Year
  Sex: Female
  Weight: 104.33 kg

DRUGS (2)
  1. BLACK TEA OIL [Concomitant]
  2. PARAGARD T 380A [Suspect]
     Active Substance: COPPER
     Dates: end: 20210126

REACTIONS (5)
  - Abortion [None]
  - Menstruation delayed [None]
  - Pregnancy with contraceptive device [None]
  - Device dislocation [None]
  - Complication associated with device [None]

NARRATIVE: CASE EVENT DATE: 20201230
